FAERS Safety Report 19595462 (Version 1)
Quarter: 2021Q3

REPORT INFORMATION
  Report Type: Spontaneous
  Country: JP (occurrence: JP)
  Receive Date: 20210723
  Receipt Date: 20210723
  Transmission Date: 20211014
  Serious: Yes (Hospitalization, Other)
  Sender: FDA-Public Use
  Company Number: JP-JNJFOC-20210740951

PATIENT
  Age: 85 Year
  Sex: Female
  Weight: 48 kg

DRUGS (10)
  1. XARELTO [Suspect]
     Active Substance: RIVAROXABAN
     Indication: THROMBOSIS PROPHYLAXIS
     Route: 048
  2. INSULIN DEGLUDEC;LIRAGLUTIDE [Concomitant]
     Indication: DIABETES MELLITUS
     Dosage: 16 DOSE PER DAY
     Route: 058
     Dates: start: 202106
  3. FRANDOL [Concomitant]
     Active Substance: ISOSORBIDE DINITRATE
     Indication: CARDIAC FAILURE CHRONIC
     Dosage: DAILY DOSE 40 MG
     Route: 062
     Dates: start: 201512
  4. TAKECAB [Concomitant]
     Active Substance: VONOPRAZAN FUMARATE
     Indication: GASTROOESOPHAGEAL REFLUX DISEASE
     Dosage: DAILY DOSE 10 MG
     Route: 048
     Dates: start: 202106
  5. BELSOMRA [Concomitant]
     Active Substance: SUVOREXANT
     Indication: INSOMNIA
     Dosage: DAILY DOSE 15 MG
     Route: 048
     Dates: start: 202106
  6. FUROSEMIDE. [Concomitant]
     Active Substance: FUROSEMIDE
     Indication: CARDIAC FAILURE CHRONIC
     Dosage: DAILY DOSE 40 MG
     Route: 048
     Dates: start: 201310
  7. MAINTATE [Concomitant]
     Active Substance: BISOPROLOL FUMARATE
     Indication: CARDIAC FAILURE CHRONIC
     Dosage: DAILY DOSE 2 DF
     Route: 048
     Dates: start: 201505
  8. XARELTO [Suspect]
     Active Substance: RIVAROXABAN
     Indication: ATRIAL FIBRILLATION
     Dosage: DAILY DOSE 10 MG
     Route: 048
     Dates: start: 20131120, end: 20210616
  9. JARDIANCE [Concomitant]
     Active Substance: EMPAGLIFLOZIN
     Indication: DIABETES MELLITUS
     Dosage: DAILY DOSE 10 MG
     Route: 048
     Dates: start: 201512
  10. ROZEREM [Concomitant]
     Active Substance: RAMELTEON
     Indication: INSOMNIA
     Dosage: DAILY DOSE 8 MG
     Route: 048
     Dates: start: 202106

REACTIONS (4)
  - Renal impairment [Unknown]
  - Hospitalisation [Unknown]
  - International normalised ratio increased [Recovering/Resolving]
  - Activated partial thromboplastin time prolonged [Recovering/Resolving]

NARRATIVE: CASE EVENT DATE: 20210611
